FAERS Safety Report 5104804-1 (Version None)
Quarter: 2006Q3

REPORT INFORMATION
  Report Type: 
  Country: None (occurrence: None)
  Receive Date: 20060914
  Receipt Date: 20060905
  Transmission Date: 20061208
  Serious: Yes (Death, Hospitalization)
  Sender: FDA-Public Use
  Company Number: US-JNJFOC-20060902670

PATIENT
  Age: 61 Year
  Sex: Male

DRUGS (5)
  1. ACETAMINOPHEN [Suspect]
  2. ACETAMINOPHEN [Suspect]
     Indication: SUICIDE ATTEMPT
  3. DILTIAZEM [Suspect]
     Indication: SUICIDE ATTEMPT
  4. TEMAZEPAM [Suspect]
     Indication: SUICIDE ATTEMPT
  5. ZOLPIDEM TARTRATE [Suspect]
     Indication: SUICIDE ATTEMPT

REACTIONS (9)
  - ACIDOSIS [None]
  - ACUTE RESPIRATORY DISTRESS SYNDROME [None]
  - BLOOD CALCIUM INCREASED [None]
  - CARDIOGENIC SHOCK [None]
  - COMPLETED SUICIDE [None]
  - HYPOGLYCAEMIA [None]
  - MULTIPLE DRUG OVERDOSE [None]
  - RENAL FAILURE [None]
  - SOMNOLENCE [None]
